FAERS Safety Report 16668213 (Version 1)
Quarter: 2019Q3

REPORT INFORMATION
  Report Type: Spontaneous
  Country: US (occurrence: US)
  Receive Date: 20190802
  Receipt Date: 20190802
  Transmission Date: 20191004
  Serious: Yes (Life-Threatening, Hospitalization, Disabling)
  Sender: FDA-Public Use
  Company Number: None

PATIENT
  Sex: Male
  Weight: 90 kg

DRUGS (7)
  1. VITAMIN B COMPLEX [Concomitant]
     Active Substance: CYANOCOBALAMIN\DEXPANTHENOL\NIACINAMIDE\PYRIDOXINE HYDROCHLORIDE\RIBOFLAVIN 5^-PHOSPHATE SODIUM\THIAMINE HYDROCHLORIDE\VITAMIN B COMPLEX
  2. ISOSORBIDE MONONITRATE. [Concomitant]
     Active Substance: ISOSORBIDE MONONITRATE
  3. ATORVASTATIN [Concomitant]
     Active Substance: ATORVASTATIN
  4. CLONIDINE. [Concomitant]
     Active Substance: CLONIDINE
  5. VITAMIN D [Concomitant]
     Active Substance: VITAMIN D NOS
  6. THIAMINE. [Concomitant]
     Active Substance: THIAMINE
  7. LISINOPRIL AND HYDROCHLOROTHIAZIDE [Suspect]
     Active Substance: HYDROCHLOROTHIAZIDE\LISINOPRIL
     Indication: HYPERTENSION
     Dosage: ?          QUANTITY:1 TABLET(S);?
     Route: 048
     Dates: start: 20160127, end: 20170315

REACTIONS (12)
  - Dyspnoea [None]
  - Muscular weakness [None]
  - Blood lactic acid increased [None]
  - Melanocytic naevus [None]
  - Tachycardia [None]
  - Blood potassium decreased [None]
  - Bradycardia [None]
  - Sinoatrial block [None]
  - Product use complaint [None]
  - Palpitations [None]
  - Cardiac pacemaker insertion [None]
  - Vitamin B1 decreased [None]
